FAERS Safety Report 23399791 (Version 1)
Quarter: 2024Q1

REPORT INFORMATION
  Report Type: Spontaneous
  Country: IT (occurrence: IT)
  Receive Date: 20240114
  Receipt Date: 20240114
  Transmission Date: 20240410
  Serious: Yes (Other)
  Sender: FDA-Public Use
  Company Number: IT-ELI_LILLY_AND_COMPANY-IT202210003026

PATIENT
  Age: 71 Year
  Sex: Female

DRUGS (2)
  1. PEMETREXED [Suspect]
     Active Substance: PEMETREXED
     Indication: Lung adenocarcinoma
     Dosage: 500 MILLIGRAM/SQ. METER (CYCLICAL  )
     Route: 065
     Dates: start: 202001, end: 202106
  2. CARBOPLATIN [Concomitant]
     Active Substance: CARBOPLATIN
     Indication: Lung adenocarcinoma
     Dosage: CYCLICAL (AUC5  )
     Route: 065
     Dates: start: 202001, end: 202106

REACTIONS (2)
  - Malignant neoplasm progression [Unknown]
  - Haematotoxicity [Unknown]
